FAERS Safety Report 4655231-2 (Version None)
Quarter: 2005Q2

REPORT INFORMATION
  Report Type: 
  Country: None (occurrence: None)
  Receive Date: 20050506
  Receipt Date: 20050426
  Transmission Date: 20051028
  Serious: Yes (Life-Threatening)
  Sender: FDA-Public Use
  Company Number: JP-GLAXOSMITHKLINE-B0379454A

PATIENT
  Age: 12 Year
  Sex: Male
  Weight: 41 kg

DRUGS (10)
  1. ZOVIRAX [Suspect]
     Indication: ENCEPHALITIS HERPES
     Dosage: 400MG THREE TIMES PER DAY
     Route: 042
     Dates: start: 20050326, end: 20050401
  2. VECURONIUM BROMIDE [Suspect]
     Indication: INTUBATION
     Dosage: 10MG PER DAY
     Route: 042
     Dates: start: 20050326, end: 20050326
  3. NEMBUTAL [Suspect]
     Route: 042
     Dates: start: 20050326, end: 20050328
  4. GLYCEOL [Concomitant]
     Dosage: 100ML THREE TIMES PER DAY
     Route: 042
     Dates: start: 20050326, end: 20050401
  5. CEFAZOLIN SODIUM [Concomitant]
     Indication: INFECTION
     Dosage: 1G TWICE PER DAY
     Route: 042
     Dates: start: 20050326, end: 20050329
  6. GASTER [Concomitant]
     Dosage: 20MG THREE TIMES PER DAY
     Route: 042
     Dates: start: 20050326, end: 20050330
  7. SOLU-MEDROL [Concomitant]
     Indication: ENCEPHALOPATHY
     Dosage: 1500MG PER DAY
     Route: 042
     Dates: start: 20050326, end: 20050327
  8. IMMUNE GLOBULIN INTRAVENOUS (HUMAN) [Concomitant]
     Indication: ENCEPHALOPATHY
     Dosage: 5G PER DAY
     Route: 042
     Dates: start: 20030326, end: 20030327
  9. INOVAN [Concomitant]
     Route: 042
     Dates: start: 20050326, end: 20050329
  10. APRESOLINE [Concomitant]
     Indication: PROMOTION OF PERIPHERAL CIRCULATION
     Route: 042
     Dates: start: 20050326, end: 20050328

REACTIONS (9)
  - BLOOD CREATINE PHOSPHOKINASE INCREASED [None]
  - BLOOD CREATININE INCREASED [None]
  - BLOOD UREA INCREASED [None]
  - GAIT DISTURBANCE [None]
  - MYALGIA [None]
  - MYOGLOBINURIA [None]
  - PAIN [None]
  - POLYURIA [None]
  - RHABDOMYOLYSIS [None]
